FAERS Safety Report 12194957 (Version 1)
Quarter: 2016Q1

REPORT INFORMATION
  Report Type: Spontaneous
  Country: US (occurrence: US)
  Receive Date: 20160321
  Receipt Date: 20160321
  Transmission Date: 20160526
  Serious: Yes (Hospitalization)
  Sender: FDA-Public Use
  Company Number: US-WARNER CHILCOTT, LLC-1049357

PATIENT
  Age: 54 Year
  Sex: Female
  Weight: 67.36 kg

DRUGS (3)
  1. FEMHRT [Suspect]
     Active Substance: ETHINYL ESTRADIOL\NORETHINDRONE ACETATE
     Route: 065
  2. ASA [Concomitant]
     Active Substance: ASPIRIN
  3. CRESTOR [Concomitant]
     Active Substance: ROSUVASTATIN CALCIUM

REACTIONS (18)
  - Peripheral artery occlusion [Unknown]
  - Popliteal artery entrapment syndrome [Unknown]
  - Aortic thrombosis [Unknown]
  - Joint swelling [Unknown]
  - Coagulopathy [Unknown]
  - Peripheral embolism [Unknown]
  - Peripheral ischaemia [Unknown]
  - Hypoaesthesia [Unknown]
  - Pain in extremity [Not Recovered/Not Resolved]
  - Gait disturbance [Unknown]
  - Aortic calcification [Unknown]
  - Peripheral swelling [Unknown]
  - Fracture [Unknown]
  - Ligament sprain [Unknown]
  - Thrombosis [Unknown]
  - Peripheral arterial occlusive disease [Unknown]
  - Arthralgia [Unknown]
  - Infection [Unknown]

NARRATIVE: CASE EVENT DATE: 20101010
